FAERS Safety Report 5745838-3 (Version None)
Quarter: 2008Q2

REPORT INFORMATION
  Report Type: 
  Country: None (occurrence: None)
  Receive Date: 20080521
  Receipt Date: 20080509
  Transmission Date: 20081010
  Serious: Yes (Life-Threatening)
  Sender: FDA-Public Use
  Company Number: DE-VALEANT-2008VX001087

PATIENT
  Age: 79 Year
  Sex: Female

DRUGS (2)
  1. DALMADORM ^ICN^ [Suspect]
     Route: 048
  2. FLUNITRAZEPAM [Suspect]
     Route: 048

REACTIONS (3)
  - INTENTIONAL OVERDOSE [None]
  - NO ADVERSE EVENT [None]
  - SUICIDE ATTEMPT [None]
